FAERS Safety Report 18245558 (Version 1)
Quarter: 2020Q3

REPORT INFORMATION
  Report Type: Spontaneous
  Country: US (occurrence: US)
  Receive Date: 20200909
  Receipt Date: 20200909
  Transmission Date: 20201103
  Serious: No
  Sender: FDA-Public Use
  Company Number: US-ELI_LILLY_AND_COMPANY-US202009002757

PATIENT
  Sex: Female
  Weight: 63.5 kg

DRUGS (5)
  1. ZYPREXA [Suspect]
     Active Substance: OLANZAPINE
     Indication: AGORAPHOBIA
  2. WELLBUTRIN [Concomitant]
     Active Substance: BUPROPION HYDROCHLORIDE
     Indication: PRODUCT USED FOR UNKNOWN INDICATION
  3. ZYPREXA [Suspect]
     Active Substance: OLANZAPINE
     Indication: DEPRESSION
  4. ZYPREXA [Suspect]
     Active Substance: OLANZAPINE
     Indication: ANXIETY
     Dosage: UNK, DAILY
     Route: 048
     Dates: start: 1999
  5. ZOLOFT [Concomitant]
     Active Substance: SERTRALINE HYDROCHLORIDE
     Indication: PRODUCT USED FOR UNKNOWN INDICATION

REACTIONS (2)
  - Drug ineffective [Unknown]
  - Feeling abnormal [Unknown]
